FAERS Safety Report 6167691-9 (Version None)
Quarter: 2009Q2

REPORT INFORMATION
  Report Type: 
  Country: None (occurrence: None)
  Receive Date: 20090424
  Receipt Date: 20090416
  Transmission Date: 20091009
  Serious: Yes (Hospitalization)
  Sender: FDA-Public Use
  Company Number: GB-AMGEN-US340264

PATIENT
  Sex: Male
  Weight: 111 kg

DRUGS (10)
  1. ENBREL [Suspect]
     Indication: RHEUMATOID ARTHRITIS
     Route: 058
     Dates: start: 20080610, end: 20081201
  2. LANSOPRAZOLE [Concomitant]
     Route: 048
  3. PREDNISOLONE [Concomitant]
     Dosage: 5MG (FREQUENCY UNKNOWN)
  4. RAMIPRIL [Concomitant]
     Route: 048
  5. SYMBICORT [Concomitant]
     Route: 055
  6. PARACETAMOL [Concomitant]
     Dosage: 1G  AS REQUIRED
     Route: 048
  7. BISOPROLOL FUMARATE [Concomitant]
     Route: 048
  8. BISOPROLOL FUMARATE [Concomitant]
     Route: 048
     Dates: start: 20081208
  9. NAPROXEN [Concomitant]
  10. ACETAMINOPHEN W/ CODEINE [Concomitant]

REACTIONS (2)
  - LOBAR PNEUMONIA [None]
  - RESPIRATORY FAILURE [None]
